FAERS Safety Report 4452249-X (Version None)
Quarter: 2004Q3

REPORT INFORMATION
  Report Type: 
  Country: None (occurrence: None)
  Receive Date: 20040915
  Receipt Date: 20040830
  Transmission Date: 20050211
  Serious: Yes (Other)
  Sender: FDA-Public Use
  Company Number: DE-SHR-04-023925

PATIENT
  Age: 29 Year
  Sex: Female

DRUGS (1)
  1. MIRENA [Suspect]
     Dosage: 20 UG/DAY, CONT, INTRA-UTERINE
     Route: 015
     Dates: start: 20031031, end: 20040409

REACTIONS (8)
  - ANXIETY DISORDER [None]
  - CONDITION AGGRAVATED [None]
  - DRUG INEFFECTIVE [None]
  - FEAR [None]
  - MIGRAINE [None]
  - PANIC ATTACK [None]
  - SOCIAL AVOIDANT BEHAVIOUR [None]
  - VAGINAL HAEMORRHAGE [None]
